FAERS Safety Report 18272871 (Version 1)
Quarter: 2020Q3

REPORT INFORMATION
  Report Type: Spontaneous
  Country: US (occurrence: US)
  Receive Date: 20200902
  Receipt Date: 20200902
  Transmission Date: 20201103
  Serious: No
  Sender: FDA-Public Use
  Company Number: None

PATIENT
  Age: 3 Decade
  Sex: Male

DRUGS (1)
  1. REMDESIVIR LOADING DOSE 200MG, THEN 100MG [Suspect]
     Active Substance: REMDESIVIR
     Indication: COVID-19
     Dosage: ?          OTHER DOSE:LOADING DOSE 200MG;OTHER ROUTE:IV?
     Dates: start: 2020

REACTIONS (3)
  - Product use in unapproved indication [None]
  - Rash maculo-papular [None]
  - Liver function test increased [None]
